FAERS Safety Report 10558568 (Version 2)
Quarter: 2015Q2

REPORT INFORMATION
  Report Type: Spontaneous
  Country: US (occurrence: US)
  Receive Date: 20141031
  Receipt Date: 20150421
  Transmission Date: 20150821
  Serious: Yes (Hospitalization, Other)
  Sender: FDA-Public Use
  Company Number: US-PFIZER INC-2014300564

PATIENT
  Age: 27 Year
  Sex: Female
  Weight: 97 kg

DRUGS (5)
  1. TOPAMAX [Suspect]
     Active Substance: TOPIRAMATE
     Indication: SEIZURE
     Dosage: 150MG IN THE MORNING, 100 MG IN THE EVENING (2X/DAY)
     Route: 048
     Dates: start: 201207
  2. LORAZEPAM. [Concomitant]
     Active Substance: LORAZEPAM
     Indication: AGITATION
     Dosage: 2 MG, AS NEEDED
  3. GEODON [Suspect]
     Active Substance: ZIPRASIDONE HYDROCHLORIDE\ZIPRASIDONE MESYLATE
     Indication: PSYCHOTIC DISORDER
     Dosage: 20 MG, 2X/DAY
     Route: 048
     Dates: start: 20140720
  4. GEODON [Suspect]
     Active Substance: ZIPRASIDONE HYDROCHLORIDE\ZIPRASIDONE MESYLATE
     Dosage: 60 MG, 2X/DAY
     Route: 048
     Dates: start: 20141024, end: 20141115
  5. GEODON [Suspect]
     Active Substance: ZIPRASIDONE HYDROCHLORIDE\ZIPRASIDONE MESYLATE
     Indication: ANXIETY
     Dosage: 40 MG, 2X/DAY
     Route: 048
     Dates: start: 20140916

REACTIONS (7)
  - Polydipsia [Recovered/Resolved]
  - Heart rate increased [Recovered/Resolved]
  - Gait disturbance [Recovered/Resolved]
  - Anxiety [Not Recovered/Not Resolved]
  - Seizure [Unknown]
  - Headache [Recovered/Resolved]
  - Anger [Not Recovered/Not Resolved]

NARRATIVE: CASE EVENT DATE: 2014
